FAERS Safety Report 23661179 (Version 1)
Quarter: 2024Q1

REPORT INFORMATION
  Report Type: Spontaneous
  Country: ES (occurrence: ES)
  Receive Date: 20240322
  Receipt Date: 20240322
  Transmission Date: 20240410
  Serious: Yes (Hospitalization, Other)
  Sender: FDA-Public Use
  Company Number: ES-AEMPS-1496652

PATIENT
  Age: 71 Year
  Sex: Male
  Weight: 68.4 kg

DRUGS (5)
  1. PIPERACILLIN SODIUM\TAZOBACTAM SODIUM [Suspect]
     Active Substance: PIPERACILLIN SODIUM\TAZOBACTAM SODIUM
     Indication: Abdominal infection
     Dosage: 1 DOSAGE FORM, 3 TIMES A DAY (1 CADA 8 HORAS *Q8H)
     Route: 042
     Dates: start: 20240127, end: 20240202
  2. ENOXAPARIN SODIUM [Concomitant]
     Active Substance: ENOXAPARIN SODIUM
     Indication: Prophylaxis
     Dosage: 40 MILLIGRAM, ONCE A DAY (40 MG / 24 H)
     Route: 058
     Dates: start: 20240128
  3. FUROSEMIDE [Concomitant]
     Active Substance: FUROSEMIDE
     Indication: Oedema
     Dosage: 10 MILLIGRAM, ONCE A DAY (10 MG /24H)
     Route: 042
     Dates: start: 20240127
  4. OMEPRAZOLE [Concomitant]
     Active Substance: OMEPRAZOLE
     Indication: Prophylaxis
     Dosage: 20 MILLIGRAM (20 MG/24H, PREVIAMENTE EL PACIENTE HA RECIBIDO 40 MG /24H IV DESDE EL 25/01/2024.)
     Route: 048
     Dates: start: 20240202, end: 20240207
  5. OMEPRAZOLE [Concomitant]
     Active Substance: OMEPRAZOLE
     Dosage: 40 MILLIGRAM
     Route: 042
     Dates: start: 20240125, end: 20240201

REACTIONS (1)
  - Clostridium difficile infection [Recovering/Resolving]

NARRATIVE: CASE EVENT DATE: 20240205
